FAERS Safety Report 19278882 (Version 2)
Quarter: 2021Q2

REPORT INFORMATION
  Report Type: Spontaneous
  Country: RU (occurrence: RU)
  Receive Date: 20210520
  Receipt Date: 20210614
  Transmission Date: 20210717
  Serious: Yes (Other)
  Sender: FDA-Public Use
  Company Number: RU-ROCHE-2831993

PATIENT
  Age: 31 Year
  Weight: 90 kg

DRUGS (2)
  1. EMICIZUMAB. [Suspect]
     Active Substance: EMICIZUMAB
     Indication: FACTOR VIII DEFICIENCY
     Dosage: (MAINTENANCE DOSE 277.8 MG (1.8 ML)
     Route: 065
     Dates: start: 201910
  2. FACTOR VIII [Concomitant]
     Active Substance: ANTIHEMOPHILIC FACTOR HUMAN
     Dosage: 2000?2000?3000 IU/DAYS
     Dates: start: 2018

REACTIONS (1)
  - Inguinal hernia [Unknown]
